FAERS Safety Report 10085630 (Version 2)
Quarter: 2014Q2

REPORT INFORMATION
  Report Type: Spontaneous
  Country: JP (occurrence: JP)
  Receive Date: 20140418
  Receipt Date: 20140418
  Transmission Date: 20141212
  Serious: Yes (Life-Threatening)
  Sender: FDA-Public Use
  Company Number: JP-009507513-1402JPN009664

PATIENT
  Age: 74 Year
  Sex: Female
  Weight: 50 kg

DRUGS (13)
  1. ZETIA TABLETS 10MG [Suspect]
     Indication: DYSLIPIDAEMIA
     Dosage: 10 MG, QD
     Route: 048
     Dates: start: 20140130, end: 20140212
  2. CELECOX [Concomitant]
     Route: 048
  3. REBAMIPIDE [Concomitant]
     Dosage: FORMULATION: POR
     Route: 048
  4. MEPTIN [Concomitant]
     Dosage: FORMULATION: POR
     Route: 048
  5. GASCON (DIMETHICONE) [Concomitant]
     Dosage: FORMULATION: POR
     Route: 048
  6. BIO THREE [Concomitant]
     Dosage: FORMULATION: POR
     Route: 048
  7. AMLODIPINE [Concomitant]
     Dosage: 5 MG, QD
     Route: 048
  8. HERBESSER R [Concomitant]
     Dosage: 100 MG, QD
     Route: 048
  9. DIOVAN [Concomitant]
     Dosage: 80 MG, QD
     Route: 048
  10. ZOLPIDEM TARTRATE [Concomitant]
     Dosage: 1 DF, QD
     Route: 048
  11. HACHIMI-JIO-GAN [Concomitant]
     Dosage: 6 DF, BID
     Route: 048
  12. LOTRIGA [Concomitant]
     Dosage: 2 G, QD
     Route: 048
  13. SENNOSIDES [Concomitant]
     Route: 048

REACTIONS (1)
  - Anaphylactic shock [Recovering/Resolving]
